FAERS Safety Report 7587536-X (Version None)
Quarter: 2011Q3

REPORT INFORMATION
  Report Type: 
  Country: None (occurrence: None)
  Receive Date: 20110704
  Receipt Date: 20110620
  Transmission Date: 20111222
  Serious: Yes (Hospitalization, Other)
  Sender: FDA-Public Use
  Company Number: PHHY2011JP41461

PATIENT
  Sex: Male
  Weight: 59 kg

DRUGS (8)
  1. DIOVAN [Suspect]
     Indication: HYPERTENSION
     Dosage: 40 MG, QD
     Route: 048
     Dates: start: 20110408, end: 20110429
  2. RISEDRONATE SODIUM [Suspect]
     Indication: OSTEOPOROSIS
     Dosage: 17.5 MG, QD
     Route: 048
     Dates: start: 20110331, end: 20110429
  3. PREDNISOLONE [Concomitant]
     Dosage: 40 MG, DAILY
     Dates: start: 20110301
  4. LANSOPRAZOLE [Concomitant]
     Dosage: 30 MG, UNK
     Route: 048
  5. PERSANTIN [Concomitant]
     Dosage: 300 MG, UNK
     Route: 048
  6. LENDORMIN [Concomitant]
     Dosage: 0.5 MG, UNK
     Route: 048
  7. ATELEC [Concomitant]
     Dosage: 10 MG, UNK
     Route: 048
  8. PREDNISOLONE [Concomitant]
     Dosage: 25 MG, UNK
     Route: 048

REACTIONS (1)
  - AGRANULOCYTOSIS [None]
